FAERS Safety Report 16387327 (Version 1)
Quarter: 2019Q2

REPORT INFORMATION
  Report Type: Spontaneous
  Country: US (occurrence: US)
  Receive Date: 20190604
  Receipt Date: 20190604
  Transmission Date: 20190711
  Serious: No
  Sender: FDA-Public Use
  Company Number: US-GLENMARK PHARMACEUTICALS-2019GMK041112

PATIENT

DRUGS (3)
  1. DESONIDE LOTION, 0.05% [Suspect]
     Active Substance: DESONIDE
     Indication: ERYTHEMA
     Dosage: UNK, OD (ONCE A DAY BUT APPLIES MORE THAN ONCE IF HE NEEDS MORE)
     Route: 061
     Dates: start: 2011
  2. DESONIDE LOTION, 0.05% [Suspect]
     Active Substance: DESONIDE
     Indication: RASH
  3. DESONIDE LOTION, 0.05% [Suspect]
     Active Substance: DESONIDE
     Indication: PRURITUS

REACTIONS (2)
  - Wrong technique in product usage process [Unknown]
  - No adverse event [Unknown]
